FAERS Safety Report 8174413-9 (Version None)
Quarter: 2012Q1

REPORT INFORMATION
  Report Type: 
  Country: None (occurrence: None)
  Receive Date: 20120229
  Receipt Date: 20120221
  Transmission Date: 20120608
  Serious: Yes (Other)
  Sender: FDA-Public Use
  Company Number: JP-EISAI INC-E2090-01986-SPO-JP

PATIENT
  Sex: Female

DRUGS (11)
  1. HALOPERIDOL [Concomitant]
  2. DIAZEPAM [Concomitant]
  3. RISUMIC [Concomitant]
  4. ZYPREXA [Concomitant]
  5. ARTANE [Concomitant]
  6. DEPAKENE [Concomitant]
  7. NITRAZEPAM [Concomitant]
  8. RISPERDAL [Concomitant]
  9. MAGNESIUM SULFATE [Concomitant]
  10. ZONISAMIDE [Suspect]
     Indication: EPILEPSY
     Route: 048
     Dates: end: 20120130
  11. LAXOBERON [Concomitant]

REACTIONS (1)
  - VISUAL ACUITY REDUCED [None]
